FAERS Safety Report 5813649-6 (Version None)
Quarter: 2008Q3

REPORT INFORMATION
  Report Type: 
  Country: None (occurrence: None)
  Receive Date: 20080717
  Receipt Date: 20080714
  Transmission Date: 20090109
  Serious: Yes (Hospitalization)
  Sender: FDA-Public Use
  Company Number: A0737508A

PATIENT
  Age: 76 Year
  Sex: Male

DRUGS (3)
  1. ADVAIR DISKUS 100/50 [Suspect]
     Indication: DYSPNOEA
     Dosage: 1PUFF PER DAY
     Route: 055
     Dates: start: 20070101
  2. ALBUTEROL [Concomitant]
  3. UNSPECIFIED MEDICATION [Concomitant]

REACTIONS (3)
  - DYSPNOEA [None]
  - LUNG ABSCESS [None]
  - PHARMACEUTICAL PRODUCT COMPLAINT [None]
